FAERS Safety Report 13245770 (Version 1)
Quarter: 2017Q1

REPORT INFORMATION
  Report Type: Spontaneous
  Country: JP (occurrence: JP)
  Receive Date: 20170217
  Receipt Date: 20170217
  Transmission Date: 20170428
  Serious: Yes (Hospitalization)
  Sender: FDA-Public Use
  Company Number: JP-ELI_LILLY_AND_COMPANY-JP201612008432

PATIENT
  Age: 21 Year
  Sex: Male
  Weight: 59 kg

DRUGS (4)
  1. ZYPREXA [Suspect]
     Active Substance: OLANZAPINE
     Dosage: 5 MG, QD
     Route: 048
     Dates: start: 20160204, end: 20160303
  2. ZYPREXA [Suspect]
     Active Substance: OLANZAPINE
     Indication: BIPOLAR DISORDER
     Dosage: 0.625 MG, QD
     Route: 048
     Dates: start: 20121022, end: 20151223
  3. ZYPREXA [Suspect]
     Active Substance: OLANZAPINE
     Dosage: 2.5 MG, QD
     Route: 048
     Dates: start: 20151224, end: 20160203
  4. LITHIUM CARBONATE CAMBER [Concomitant]
     Indication: PRODUCT USED FOR UNKNOWN INDICATION
     Dosage: 400 MG, UNK
     Route: 065
     Dates: start: 20121220, end: 20160303

REACTIONS (5)
  - Diabetic ketoacidosis [Recovering/Resolving]
  - Wrong technique in product usage process [Unknown]
  - Mania [Unknown]
  - Bronchopulmonary aspergillosis allergic [Unknown]
  - Type 1 diabetes mellitus [Recovering/Resolving]

NARRATIVE: CASE EVENT DATE: 20150326
